FAERS Safety Report 4745229-8 (Version None)
Quarter: 2005Q3

REPORT INFORMATION
  Report Type: 
  Country: None (occurrence: None)
  Receive Date: 20050812
  Receipt Date: 20050801
  Transmission Date: 20060218
  Serious: Yes (Hospitalization)
  Sender: FDA-Public Use
  Company Number: MK200508-0007-1

PATIENT
  Age: 50 Year
  Sex: Female

DRUGS (1)
  1. HEXABRIX [Suspect]
     Indication: ARTHROGRAM
     Dosage: SINGLE USE, IA
     Route: 013
     Dates: start: 20050712, end: 20050712

REACTIONS (9)
  - BACK PAIN [None]
  - CHILLS [None]
  - HEADACHE [None]
  - MENINGEAL DISORDER [None]
  - NAUSEA [None]
  - PAIN IN EXTREMITY [None]
  - POST PROCEDURAL COMPLICATION [None]
  - PYREXIA [None]
  - VOMITING [None]
